FAERS Safety Report 23785445 (Version 2)
Quarter: 2024Q2

REPORT INFORMATION
  Report Type: Report from Study
  Country: NL (occurrence: NL)
  Receive Date: 20240425
  Receipt Date: 20240506
  Transmission Date: 20240716
  Serious: Yes (Life-Threatening, Hospitalization, Other)
  Sender: FDA-Public Use
  Company Number: NL-VER-202400032

PATIENT
  Age: 83 Year
  Sex: Male

DRUGS (3)
  1. TRIPTORELIN PAMOATE [Suspect]
     Active Substance: TRIPTORELIN PAMOATE
     Indication: Prostate cancer
     Dosage: 0.125 MILLIGRAM(S) (22.5 MILLIGRAM(S), 1 IN 6 MONTH)
     Route: 030
     Dates: start: 20230425, end: 20230425
  2. TRIPTORELIN PAMOATE [Suspect]
     Active Substance: TRIPTORELIN PAMOATE
     Indication: Prostate cancer
     Dosage: 0.125 MILLIGRAM(S) (22.5 MILLIGRAM(S), 1 IN 6 MONTH)
     Route: 030
     Dates: start: 20231017, end: 20231017
  3. TRIPTORELIN PAMOATE [Suspect]
     Active Substance: TRIPTORELIN PAMOATE
     Indication: Prostate cancer
     Dosage: 0.125 MILLIGRAM(S) (22.5 MILLIGRAM(S), 1 IN 6 MONTH)
     Route: 030
     Dates: start: 20240416

REACTIONS (1)
  - Terminal state [Not Recovered/Not Resolved]

NARRATIVE: CASE EVENT DATE: 20240416
